FAERS Safety Report 4595227-2 (Version None)
Quarter: 2005Q1

REPORT INFORMATION
  Report Type: 
  Country: None (occurrence: None)
  Receive Date: 20050224
  Receipt Date: 20050106
  Transmission Date: 20050727
  Serious: Yes (Hospitalization, Disabling)
  Sender: FDA-Public Use
  Company Number: 2005026493

PATIENT
  Age: 74 Year
  Sex: Male

DRUGS (1)
  1. CELEBREX [Suspect]
     Indication: BACK PAIN
     Dates: start: 20030601, end: 20040101

REACTIONS (4)
  - ABASIA [None]
  - CARDIAC DISORDER [None]
  - DYSPNOEA [None]
  - VASCULAR OCCLUSION [None]
